FAERS Safety Report 24251522 (Version 2)
Quarter: 2024Q3

REPORT INFORMATION
  Report Type: Report from Study
  Country: US (occurrence: US)
  Receive Date: 20240827
  Receipt Date: 20240906
  Transmission Date: 20241017
  Serious: Yes (Hospitalization, Other)
  Sender: ABBVIE
  Company Number: US-ABBVIE-5885157

PATIENT
  Sex: Female
  Weight: 77 kg

DRUGS (5)
  1. QULIPTA [Suspect]
     Active Substance: ATOGEPANT
     Indication: Migraine
     Dosage: FORM STRENGTH: 60 MILLIGRAM
     Route: 048
     Dates: start: 2021
  2. AMLODIPINE [Concomitant]
     Active Substance: AMLODIPINE BESYLATE
     Indication: Blood pressure measurement
     Dosage: 5 MILLIGRAM
  3. NURTEC ODT [Concomitant]
     Active Substance: RIMEGEPANT SULFATE
     Indication: Migraine
     Dosage: TIME INTERVAL: AS NECESSARY
  4. CLONAZEPAM [Concomitant]
     Active Substance: CLONAZEPAM
     Indication: Restless legs syndrome
     Dosage: 2 MILLIGRAM
  5. IMIPRAMINE [Concomitant]
     Active Substance: IMIPRAMINE
     Indication: Migraine
     Dosage: 10 MILLIGRAM

REACTIONS (5)
  - Spinal osteoarthritis [Recovering/Resolving]
  - Hypoaesthesia [Recovering/Resolving]
  - Spinal operation [Recovered/Resolved]
  - Paraesthesia [Recovering/Resolving]
  - Fall [Recovered/Resolved]

NARRATIVE: CASE EVENT DATE: 20210101
